FAERS Safety Report 25739061 (Version 2)
Quarter: 2025Q4

REPORT INFORMATION
  Report Type: Spontaneous
  Country: US (occurrence: US)
  Receive Date: 20250829
  Receipt Date: 20251122
  Transmission Date: 20260119
  Serious: No
  Sender: MDD OPERATIONS
  Company Number: US-MDD US Operations-MDD202507-002794

PATIENT
  Age: 61 Year
  Sex: Female

DRUGS (3)
  1. ONAPGO [Suspect]
     Active Substance: APOMORPHINE HYDROCHLORIDE
     Indication: Parkinson^s disease
     Dates: start: 20250723
  2. ONAPGO [Suspect]
     Active Substance: APOMORPHINE HYDROCHLORIDE
     Indication: Dyskinesia
     Dosage: FOR 16 HOURS
     Dates: start: 20250806
  3. ONAPGO [Suspect]
     Active Substance: APOMORPHINE HYDROCHLORIDE
     Indication: On and off phenomenon
     Dosage: 98MG DAILY
     Route: 058
     Dates: start: 202507

REACTIONS (8)
  - Injection site bruising [Unknown]
  - Fall [Unknown]
  - Infusion site haemorrhage [Recovered/Resolved]
  - Infusion site erythema [Recovered/Resolved]
  - Somnolence [Recovered/Resolved]
  - Injection site swelling [Unknown]
  - Injection site irritation [Unknown]
  - Device expulsion [Unknown]

NARRATIVE: CASE EVENT DATE: 20250723
